FAERS Safety Report 14413790 (Version 1)
Quarter: 2018Q1

REPORT INFORMATION
  Report Type: Spontaneous
  Country: US (occurrence: US)
  Receive Date: 20180117
  Receipt Date: 20180117
  Transmission Date: 20180509
  Serious: Yes (Other)
  Sender: FDA-Public Use
  Company Number: None

PATIENT
  Age: 86 Year
  Sex: Male
  Weight: 74.84 kg

DRUGS (1)
  1. EYLEA [Suspect]
     Active Substance: AFLIBERCEPT
     Dosage: 2MG EVERY 6 WEEKS RIGHT EYE
     Route: 031
     Dates: start: 20171130

REACTIONS (1)
  - Eye inflammation [None]

NARRATIVE: CASE EVENT DATE: 20171130
